FAERS Safety Report 13561233 (Version 1)
Quarter: 2017Q2

REPORT INFORMATION
  Report Type: Spontaneous
  Country: IN (occurrence: IN)
  Receive Date: 20170518
  Receipt Date: 20170518
  Transmission Date: 20170830
  Serious: Yes (Hospitalization)
  Sender: FDA-Public Use
  Company Number: IN-ALKEM LABORATORIES LIMITED-IN-ALKEM-2017-00240

PATIENT
  Age: 10 Year
  Sex: Female

DRUGS (9)
  1. SERENACE [Suspect]
     Active Substance: HALOPERIDOL
     Indication: ENCEPHALITIS AUTOIMMUNE
     Dosage: 0.5 MG, BID
  2. OLANZAPINE. [Suspect]
     Active Substance: OLANZAPINE
     Indication: ENCEPHALITIS AUTOIMMUNE
     Dosage: 1.25 MG, OD, MORNING
  3. OLANZAPINE. [Suspect]
     Active Substance: OLANZAPINE
     Dosage: 2.5 MG, OD, NIGHT
  4. UDILIV [Concomitant]
     Indication: ENCEPHALITIS AUTOIMMUNE
     Dosage: 300 MG, BID
  5. CLONAZEPAM. [Concomitant]
     Active Substance: CLONAZEPAM
     Indication: ENCEPHALITIS AUTOIMMUNE
     Dosage: 0.25 MG, BID
  6. PAN [Concomitant]
     Indication: PRODUCT USED FOR UNKNOWN INDICATION
     Dosage: 20 MG, OD
  7. CARNISURE [Concomitant]
     Indication: ENCEPHALITIS AUTOIMMUNE
     Dosage: 330 MG, BID
  8. WYSOLONE [Concomitant]
     Active Substance: PREDNISOLONE
     Indication: ENCEPHALITIS AUTOIMMUNE
     Dosage: 30 MG, OD
  9. LEVIPIL [Concomitant]
     Active Substance: LEVETIRACETAM
     Indication: ENCEPHALITIS AUTOIMMUNE
     Dosage: 125 MG, BID
     Dates: start: 201603

REACTIONS (4)
  - Blood creatine phosphokinase increased [Unknown]
  - Liver function test abnormal [Unknown]
  - Extrapyramidal disorder [Unknown]
  - Seizure [Unknown]
